FAERS Safety Report 8953068 (Version 1)
Quarter: 2012Q4

REPORT INFORMATION
  Report Type: 
  Country: CA (occurrence: CA)
  Receive Date: 20121205
  Receipt Date: 20121205
  Transmission Date: 20130627
  Serious: Yes (Hospitalization)
  Sender: FDA-Public Use
  Company Number: CA-B.I. PHARMACEUTICALS,INC./RIDGEFIELD-2012-CN-02432CN

PATIENT
  Sex: Male

DRUGS (4)
  1. PRADAX [Suspect]
     Indication: ATRIAL FIBRILLATION
     Dosage: 300 mg
     Dates: start: 201205, end: 201208
  2. ACE INHIBITORS [Concomitant]
  3. ANTIHYPERTENSIVES [Concomitant]
     Indication: HYPERTENSION
  4. BETA BLOCKER [Concomitant]

REACTIONS (2)
  - Neoplasm skin [Recovered/Resolved]
  - Procedural haemorrhage [Recovered/Resolved]
